FAERS Safety Report 18668366 (Version 1)
Quarter: 2020Q4

REPORT INFORMATION
  Report Type: Spontaneous
  Country: JP (occurrence: JP)
  Receive Date: 20201228
  Receipt Date: 20201228
  Transmission Date: 20210114
  Serious: Yes (Other)
  Sender: FDA-Public Use
  Company Number: NVSJ2020JP013856

PATIENT
  Age: 55 Year
  Sex: Female

DRUGS (1)
  1. CYCLOSPORINE. [Suspect]
     Active Substance: CYCLOSPORINE
     Indication: MYASTHENIA GRAVIS
     Dosage: 2 MG/KG
     Route: 048

REACTIONS (11)
  - Hypoaesthesia [Unknown]
  - Asthenia [Unknown]
  - Lung opacity [Unknown]
  - Pain [Unknown]
  - Sinusitis [Unknown]
  - Arthropathy [Unknown]
  - Angiopathy [Unknown]
  - Eosinophilic granulomatosis with polyangiitis [Recovering/Resolving]
  - Product use in unapproved indication [Unknown]
  - Eosinophilia [Unknown]
  - Sensory disturbance [Unknown]
